FAERS Safety Report 8773295 (Version 2)
Quarter: 2012Q4

REPORT INFORMATION
  Report Type: 
  Country: DE (occurrence: DE)
  Receive Date: 20120907
  Receipt Date: 20121109
  Transmission Date: 20130627
  Serious: Yes (Death, Other)
  Sender: FDA-Public Use
  Company Number: PHHY2012DE077282

PATIENT
  Age: 52 Year
  Sex: Male

DRUGS (2)
  1. HEPARIN [Suspect]
     Route: 042
  2. DIURETICS [Concomitant]

REACTIONS (13)
  - Multi-organ failure [Fatal]
  - Hyperkalaemia [Fatal]
  - Renal failure acute [Fatal]
  - Acute hepatic failure [Fatal]
  - Hypoperfusion [Fatal]
  - Metabolic acidosis [Unknown]
  - Respiratory gas exchange disorder [Unknown]
  - Heparin-induced thrombocytopenia [Unknown]
  - Pulmonary embolism [Unknown]
  - Aortic thrombosis [Unknown]
  - Arterial thrombosis [Unknown]
  - Renal infarct [Unknown]
  - Haemorrhage [Unknown]
